FAERS Safety Report 8419655-X (Version None)
Quarter: 2012Q2

REPORT INFORMATION
  Report Type: 
  Country: None (occurrence: None)
  Receive Date: 20120607
  Receipt Date: 20120604
  Transmission Date: 20120825
  Serious: Yes (Other)
  Sender: FDA-Public Use
  Company Number: US-CELGENEUS-163-21880-12040501

PATIENT
  Sex: Male

DRUGS (7)
  1. DEXAMETHASONE [Concomitant]
     Indication: MULTIPLE MYELOMA
     Dosage: 10 MILLIGRAM
     Route: 041
     Dates: start: 20111018
  2. REVLIMID [Suspect]
     Dosage: 10 MILLIGRAM
     Route: 048
     Dates: start: 20120404
  3. VELCADE [Suspect]
     Dosage: 2.5 MILLIGRAM
     Route: 058
     Dates: start: 20120228
  4. REVLIMID [Suspect]
     Indication: MULTIPLE MYELOMA
     Dosage: 25 MILLIGRAM
     Route: 048
     Dates: start: 20090701
  5. VELCADE [Suspect]
     Indication: MULTIPLE MYELOMA
     Dosage: 2.7 MILLIGRAM
     Route: 041
     Dates: start: 20111018, end: 20120217
  6. REVLIMID [Suspect]
     Dosage: 25 MILLIGRAM
     Route: 048
     Dates: start: 20110901
  7. REVLIMID [Suspect]
     Dosage: 15 MILLIGRAM
     Route: 048
     Dates: start: 20111001

REACTIONS (3)
  - RENAL FAILURE CHRONIC [None]
  - NEUROPATHY PERIPHERAL [None]
  - CEREBRAL ARTERY OCCLUSION [None]
